FAERS Safety Report 11621709 (Version 1)
Quarter: 2015Q4

REPORT INFORMATION
  Report Type: Report from Study
  Country: VE (occurrence: VE)
  Receive Date: 20151013
  Receipt Date: 20151013
  Transmission Date: 20160304
  Serious: Yes (Hospitalization, Other)
  Sender: FDA-Public Use
  Company Number: VE-ROCHE-1550482

PATIENT
  Age: 74 Year
  Sex: Female

DRUGS (6)
  1. RANIBIZUMAB [Suspect]
     Active Substance: RANIBIZUMAB
     Dosage: RIGHT EYE
     Route: 050
     Dates: start: 2014
  2. ENALAPRIL [Concomitant]
     Active Substance: ENALAPRIL
  3. RANIBIZUMAB [Suspect]
     Active Substance: RANIBIZUMAB
     Dosage: RIGHT EYE
     Route: 050
     Dates: start: 201501, end: 201501
  4. ARTIFICIAL TEARS (POLYVINYL ALCOHOL) [Concomitant]
     Active Substance: POLYVINYL ALCOHOL
  5. RANIBIZUMAB [Suspect]
     Active Substance: RANIBIZUMAB
     Indication: MACULOPATHY
     Dosage: RIGHT EYE
     Route: 050
     Dates: start: 2012
  6. RANIBIZUMAB [Suspect]
     Active Substance: RANIBIZUMAB
     Dosage: RIGHT EYE
     Route: 050
     Dates: start: 20141205, end: 20141205

REACTIONS (20)
  - Blindness [Recovering/Resolving]
  - Eye injury [Unknown]
  - Retinal scar [Unknown]
  - Cataract [Unknown]
  - Pancreatic mass [Unknown]
  - Asthenia [Recovering/Resolving]
  - Abdominal discomfort [Recovering/Resolving]
  - Product use issue [Unknown]
  - Foreign body in eye [Unknown]
  - Haematemesis [Unknown]
  - Pain [Recovering/Resolving]
  - Fatigue [Recovering/Resolving]
  - Off label use [Unknown]
  - Feeling hot [Unknown]
  - Eye haemorrhage [Recovering/Resolving]
  - Abdominal pain upper [Recovering/Resolving]
  - Visual impairment [Recovering/Resolving]
  - General physical health deterioration [Unknown]
  - Visual acuity reduced [Recovering/Resolving]
  - Blood pressure increased [Unknown]

NARRATIVE: CASE EVENT DATE: 20141205
